FAERS Safety Report 6130942-0 (Version None)
Quarter: 2009Q1

REPORT INFORMATION
  Report Type: 
  Country: None (occurrence: None)
  Receive Date: 20090325
  Receipt Date: 20090320
  Transmission Date: 20090719
  Serious: Yes (Hospitalization)
  Sender: FDA-Public Use
  Company Number: DE-ABBOTT-09P-062-0563809-00

PATIENT
  Sex: Male

DRUGS (2)
  1. HUMIRA [Suspect]
     Indication: CROHN'S DISEASE
     Route: 048
  2. CORTISONE [Concomitant]
     Indication: DRUG USE FOR UNKNOWN INDICATION
     Dosage: DOSAGE DECREASED 5MG

REACTIONS (4)
  - BACTERIA STOOL IDENTIFIED [None]
  - CHRONIC OBSTRUCTIVE PULMONARY DISEASE [None]
  - FREQUENT BOWEL MOVEMENTS [None]
  - URINARY TRACT INFECTION [None]
